FAERS Safety Report 7337933-2 (Version None)
Quarter: 2011Q1

REPORT INFORMATION
  Report Type: 
  Country: None (occurrence: None)
  Receive Date: 20110308
  Receipt Date: 20110120
  Transmission Date: 20110831
  Serious: Yes (Other)
  Sender: FDA-Public Use
  Company Number: JP-ASTRAZENECA-2011SE12318

PATIENT
  Age: 31573 Day
  Sex: Female

DRUGS (5)
  1. MEROPEN [Suspect]
     Indication: PERITONITIS
     Route: 042
     Dates: start: 20101208, end: 20101218
  2. OMEPRAL [Concomitant]
     Route: 042
     Dates: start: 20101208
  3. BISOLVON [Concomitant]
     Dates: start: 20101208
  4. VEEN-D [Concomitant]
     Dates: start: 20101208
  5. ELNEOPA NO.1 [Concomitant]
     Dates: start: 20101218

REACTIONS (1)
  - DEPRESSED LEVEL OF CONSCIOUSNESS [None]
